FAERS Safety Report 5763771-8 (Version None)
Quarter: 2008Q2

REPORT INFORMATION
  Report Type: 
  Country: None (occurrence: None)
  Receive Date: 20080606
  Receipt Date: 20080606
  Transmission Date: 20081010
  Serious: Yes (Other)
  Sender: FDA-Public Use
  Company Number: None

PATIENT
  Sex: Male
  Weight: 63.5036 kg

DRUGS (1)
  1. LEVAQUIN [Suspect]
     Indication: PROSTATITIS
     Dosage: 1/DAY ORAL
     Route: 048
     Dates: start: 20080420, end: 20080503

REACTIONS (2)
  - TENDON INJURY [None]
  - TENDON RUPTURE [None]
